FAERS Safety Report 5401825-6 (Version None)
Quarter: 2007Q3

REPORT INFORMATION
  Report Type: 
  Country: None (occurrence: None)
  Receive Date: 20070726
  Receipt Date: 20070716
  Transmission Date: 20080115
  Serious: Yes (Other)
  Sender: FDA-Public Use
  Company Number: 2007-03341

PATIENT
  Age: 61 Year
  Sex: Female

DRUGS (2)
  1. TRIAMCINOLONE ACETONIDE [Suspect]
     Indication: VITRECTOMY
     Dosage: 4 MG, INTRAOCULAR
     Route: 031
     Dates: start: 20060101, end: 20060101
  2. LEVOFLOXACIN [Concomitant]

REACTIONS (2)
  - EYE INFECTION FUNGAL [None]
  - FUSARIUM INFECTION [None]
